FAERS Safety Report 5755117-6 (Version None)
Quarter: 2008Q2

REPORT INFORMATION
  Report Type: 
  Country: None (occurrence: None)
  Receive Date: 20080602
  Receipt Date: 20080111
  Transmission Date: 20081010
  Serious: No
  Sender: FDA-Public Use
  Company Number: A0702755A

PATIENT
  Age: 2 Year
  Sex: Female
  Weight: 12.7 kg

DRUGS (2)
  1. AUGMENTIN '125' [Suspect]
     Indication: EAR INFECTION
     Dosage: 1TSP THREE TIMES PER DAY
     Route: 048
     Dates: start: 20080103
  2. POLYHISTINE D PED [Concomitant]

REACTIONS (2)
  - DIARRHOEA [None]
  - VOMITING [None]
